FAERS Safety Report 6030620-2 (Version None)
Quarter: 2009Q1

REPORT INFORMATION
  Report Type: 
  Country: None (occurrence: None)
  Receive Date: 20090106
  Receipt Date: 20090106
  Transmission Date: 20090719
  Serious: Yes (Other)
  Sender: FDA-Public Use
  Company Number: None

PATIENT
  Age: 62 Year
  Sex: Female
  Weight: 66.2252 kg

DRUGS (1)
  1. ZYVOX [Suspect]
     Indication: CELLULITIS
     Dosage: 1 PILL TWICE A DAY PO
     Route: 048
     Dates: start: 20081224, end: 20081225

REACTIONS (9)
  - ANXIETY [None]
  - CRYING [None]
  - HEADACHE [None]
  - HEART RATE INCREASED [None]
  - ILL-DEFINED DISORDER [None]
  - INSOMNIA [None]
  - MYDRIASIS [None]
  - RESTLESSNESS [None]
  - TREMOR [None]
